FAERS Safety Report 6188771-8 (Version None)
Quarter: 2009Q2

REPORT INFORMATION
  Report Type: 
  Country: None (occurrence: None)
  Receive Date: 20090513
  Receipt Date: 20090507
  Transmission Date: 20091009
  Serious: Yes (Life-Threatening, Hospitalization)
  Sender: FDA-Public Use
  Company Number: GB-MERCK-0904GBR00117

PATIENT
  Age: 72 Year
  Sex: Male
  Weight: 79 kg

DRUGS (1)
  1. ZOCOR [Suspect]
     Route: 048
     Dates: end: 20090417

REACTIONS (4)
  - FALL [None]
  - MUSCULAR WEAKNESS [None]
  - MYOSITIS [None]
  - RENAL FAILURE ACUTE [None]
